FAERS Safety Report 8060512-9 (Version None)
Quarter: 2012Q1

REPORT INFORMATION
  Report Type: 
  Country: None (occurrence: None)
  Receive Date: 20120120
  Receipt Date: 20120109
  Transmission Date: 20120608
  Serious: Yes (Death, Life-Threatening, Hospitalization)
  Sender: FDA-Public Use
  Company Number: FR-BRISTOL-MYERS SQUIBB COMPANY-15121387

PATIENT
  Age: 69 Year
  Sex: Male

DRUGS (8)
  1. CAPTOPRIL [Concomitant]
  2. GLUCOPHAGE [Suspect]
     Indication: TYPE 2 DIABETES MELLITUS
  3. ASPIRIN [Concomitant]
  4. SERTRALINE HYDROCHLORIDE [Concomitant]
  5. SPIRIVA [Concomitant]
  6. GLYBURIDE [Concomitant]
  7. FORADIL [Concomitant]
  8. OMEPRAZOLE [Concomitant]

REACTIONS (13)
  - LUNG DISORDER [None]
  - HYPERGLYCAEMIA [None]
  - CEREBROVASCULAR ACCIDENT [None]
  - METABOLIC ACIDOSIS [None]
  - BLOOD CREATININE INCREASED [None]
  - MULTI-ORGAN FAILURE [None]
  - ACUTE CORONARY SYNDROME [None]
  - OSTEOARTHRITIS [None]
  - FALL [None]
  - BRONCHOPNEUMONIA [None]
  - BRONCHIAL CARCINOMA [None]
  - MALNUTRITION [None]
  - LACTIC ACIDOSIS [None]
